FAERS Safety Report 12119338 (Version 4)
Quarter: 2016Q1

REPORT INFORMATION
  Report Type: Spontaneous
  Country: CZ (occurrence: CZ)
  Receive Date: 20160226
  Receipt Date: 20160315
  Transmission Date: 20160526
  Serious: Yes (Life-Threatening, Hospitalization, Other)
  Sender: FDA-Public Use
  Company Number: CZ-009507513-1602CZE009719

PATIENT
  Age: 73 Year
  Sex: Female
  Weight: 64 kg

DRUGS (1)
  1. BRIDION [Suspect]
     Active Substance: SUGAMMADEX
     Indication: ANAESTHESIA REVERSAL
     Dosage: 200 MG IN 10 ML OF SALINE SOLUTION, STRENGTH: 100 MG/ML
     Route: 042
     Dates: start: 20160215, end: 20160215

REACTIONS (9)
  - Oxygen saturation decreased [Recovered/Resolved]
  - Anaphylactic reaction [Recovering/Resolving]
  - Product quality issue [Unknown]
  - Lip swelling [Recovering/Resolving]
  - Tongue oedema [Recovering/Resolving]
  - Hypotension [Recovering/Resolving]
  - Swelling face [Recovering/Resolving]
  - Ventricular extrasystoles [Recovering/Resolving]
  - Erythema [Unknown]

NARRATIVE: CASE EVENT DATE: 20160215
